FAERS Safety Report 14057079 (Version 2)
Quarter: 2017Q4

REPORT INFORMATION
  Report Type: Spontaneous
  Country: CA (occurrence: CA)
  Receive Date: 20171006
  Receipt Date: 20171121
  Transmission Date: 20180321
  Serious: Yes (Hospitalization, Other)
  Sender: FDA-Public Use
  Company Number: CA-OTSUKA-2017_021072

PATIENT
  Age: 56 Year
  Sex: Female
  Weight: 85.5 kg

DRUGS (5)
  1. REXULTI [Suspect]
     Active Substance: BREXPIPRAZOLE
     Indication: SCHIZOPHRENIA
     Dosage: 4 MG, QD (DAY 5 TOOK AT 8AM)
     Route: 048
     Dates: end: 201709
  2. OLANZAPINE. [Concomitant]
     Active Substance: OLANZAPINE
     Indication: CATATONIA
     Dosage: UNK
     Route: 065
  3. CLOZAPINE. [Concomitant]
     Active Substance: CLOZAPINE
     Indication: PSYCHOTIC DISORDER
     Dosage: 100 MG, QD (HS)
     Route: 048
     Dates: start: 2015, end: 201709
  4. REXULTI [Suspect]
     Active Substance: BREXPIPRAZOLE
     Dosage: 4 MG, QD (ON DAY 4 TOOK REXULTI AT 1PM)
     Route: 048
     Dates: end: 201709
  5. HALDOL [Concomitant]
     Active Substance: HALOPERIDOL
     Indication: CATATONIA
     Dosage: 2MG AM AND 1.5MG HS
     Route: 048
     Dates: start: 201707, end: 201709

REACTIONS (5)
  - Schizophrenia [Unknown]
  - Dizziness [Not Recovered/Not Resolved]
  - Drug ineffective [Unknown]
  - Muscular weakness [Not Recovered/Not Resolved]
  - Hypophagia [Recovered/Resolved]

NARRATIVE: CASE EVENT DATE: 201708
